FAERS Safety Report 8113088-1 (Version None)
Quarter: 2012Q1

REPORT INFORMATION
  Report Type: 
  Country: None (occurrence: None)
  Receive Date: 20120203
  Receipt Date: 20120130
  Transmission Date: 20120608
  Serious: Yes (Life-Threatening, Hospitalization, Other)
  Sender: FDA-Public Use
  Company Number: DE-GLAXOSMITHKLINE-D0073691A

PATIENT
  Age: 68 Year
  Sex: Male
  Weight: 120 kg

DRUGS (8)
  1. TORSEMIDE [Suspect]
     Dosage: 30MG PER DAY
     Route: 048
     Dates: start: 20100401, end: 20100407
  2. RAMIPRIL [Concomitant]
     Dosage: 50MG PER DAY
     Route: 065
     Dates: start: 20100201
  3. MULTIPLE MEDICATION [Concomitant]
     Route: 065
  4. FUROSEMIDE [Concomitant]
     Dosage: 80MG PER DAY
     Route: 065
  5. CEFUROXIME [Suspect]
     Indication: LUNG INFECTION
     Dosage: 500MG THREE TIMES PER DAY
     Route: 048
     Dates: start: 20100330, end: 20100406
  6. INSULIN [Concomitant]
     Route: 065
  7. CLARITHROMYCIN [Suspect]
     Indication: LUNG INFECTION
     Dosage: 500MG PER DAY
     Route: 048
     Dates: start: 20100330, end: 20100406
  8. ALDACTONE [Concomitant]
     Dosage: 25MG PER DAY
     Route: 065

REACTIONS (2)
  - RENAL TUBULAR NECROSIS [None]
  - RENAL FAILURE ACUTE [None]
